FAERS Safety Report 12317796 (Version 6)
Quarter: 2016Q3

REPORT INFORMATION
  Report Type: Spontaneous
  Country: US (occurrence: US)
  Receive Date: 20160429
  Receipt Date: 20160923
  Transmission Date: 20161109
  Serious: Yes (Death, Hospitalization)
  Sender: FDA-Public Use
  Company Number: US-PFIZER INC-2016225399

PATIENT
  Age: 80 Year
  Sex: Female
  Weight: 61 kg

DRUGS (11)
  1. XALKORI [Suspect]
     Active Substance: CRIZOTINIB
     Dosage: 250 MG, UNK
     Dates: start: 201603, end: 2016
  2. XALKORI [Suspect]
     Active Substance: CRIZOTINIB
     Dosage: ONE CAPSULE A DAY
     Route: 048
     Dates: start: 201604, end: 2016
  3. TENORMIN [Concomitant]
     Active Substance: ATENOLOL
     Indication: BLOOD PRESSURE ABNORMAL
     Dosage: 50 MG, UNK
     Dates: end: 201603
  4. BABY ASPIRIN [Concomitant]
     Active Substance: ASPIRIN
     Indication: BLOOD PRESSURE ABNORMAL
     Dosage: 81 MG, UNK
  5. TYLENOL WITH CODEINE [Concomitant]
     Active Substance: ACETAMINOPHEN\CODEINE PHOSPHATE
  6. PLAVIX [Concomitant]
     Active Substance: CLOPIDOGREL BISULFATE
     Indication: BLOOD PRESSURE ABNORMAL
     Dosage: 75 MG, UNK
  7. XALKORI [Suspect]
     Active Substance: CRIZOTINIB
     Dosage: 250, TWICE DAILY
     Route: 048
     Dates: start: 201604, end: 201604
  8. PLAVIX [Concomitant]
     Active Substance: CLOPIDOGREL BISULFATE
     Indication: TRANSIENT ISCHAEMIC ATTACK
  9. XALKORI [Suspect]
     Active Substance: CRIZOTINIB
     Indication: LUNG NEOPLASM MALIGNANT
     Dosage: UNK
     Route: 048
     Dates: start: 201602, end: 2016
  10. LISINOPRIL. [Concomitant]
     Active Substance: LISINOPRIL
     Indication: BLOOD PRESSURE ABNORMAL
     Dosage: 20 MG, UNK
     Dates: end: 201603
  11. XALKORI [Suspect]
     Active Substance: CRIZOTINIB
     Dosage: UNK
     Dates: start: 2016

REACTIONS (10)
  - Condition aggravated [Unknown]
  - Fall [Unknown]
  - Death [Fatal]
  - Gait disturbance [Unknown]
  - Feeling abnormal [Unknown]
  - Nausea [Unknown]
  - Vomiting [Recovered/Resolved]
  - Hypotension [Unknown]
  - Dyspnoea [Unknown]
  - Asthenia [Unknown]

NARRATIVE: CASE EVENT DATE: 2016
